FAERS Safety Report 8838756 (Version 1)
Quarter: 2012Q4

REPORT INFORMATION
  Report Type: 
  Country: US (occurrence: US)
  Receive Date: 20121012
  Receipt Date: 20121012
  Transmission Date: 20130627
  Serious: Yes (Other)
  Sender: FDA-Public Use
  Company Number: CHPA2012US021302

PATIENT
  Age: 55 Year
  Sex: Female

DRUGS (5)
  1. MAALOX UNKNOWN [Suspect]
     Indication: GASTROOESOPHAGEAL REFLUX DISEASE
     Dosage: according to label
     Route: 048
  2. NEXIUM                             /01479302/ [Concomitant]
     Dosage: UNK, UNK
     Route: 048
     Dates: end: 2004
  3. NEXIUM                             /01479302/ [Concomitant]
     Route: 048
     Dates: start: 2007
  4. ACIPHEX [Concomitant]
     Dosage: UNK, UNK
     Dates: start: 2004, end: 2007
  5. RANITIDINE [Concomitant]
     Dosage: UNK, UNK

REACTIONS (7)
  - Diverticulitis [Not Recovered/Not Resolved]
  - Multiple chemical sensitivity [Unknown]
  - Food poisoning [Recovered/Resolved]
  - Gastrooesophageal reflux disease [Unknown]
  - Condition aggravated [Unknown]
  - Oesophageal pain [Recovered/Resolved]
  - Off label use [Unknown]
